FAERS Safety Report 7440698-7 (Version None)
Quarter: 2011Q2

REPORT INFORMATION
  Report Type: 
  Country: None (occurrence: None)
  Receive Date: 20110427
  Receipt Date: 20110420
  Transmission Date: 20111010
  Serious: Yes (Hospitalization)
  Sender: FDA-Public Use
  Company Number: FR-AMGEN-FRASP2011020668

PATIENT
  Age: 98 Year
  Sex: Male

DRUGS (1)
  1. ARANESP [Suspect]
     Indication: RENAL FAILURE
     Dosage: 100 A?G, UNK
     Dates: start: 20110419

REACTIONS (4)
  - PYREXIA [None]
  - C-REACTIVE PROTEIN INCREASED [None]
  - INFECTION [None]
  - ALPHA GLOBULIN INCREASED [None]
